APPROVED DRUG PRODUCT: AMITRIPTYLINE HYDROCHLORIDE
Active Ingredient: AMITRIPTYLINE HYDROCHLORIDE
Strength: 25MG
Dosage Form/Route: TABLET;ORAL
Application: A088076 | Product #001
Applicant: PUREPAC PHARMACEUTICAL CO
Approved: May 20, 1983 | RLD: No | RS: No | Type: DISCN